FAERS Safety Report 10630524 (Version 1)
Quarter: 2014Q4

REPORT INFORMATION
  Report Type: Spontaneous
  Country: US (occurrence: US)
  Receive Date: 20141205
  Receipt Date: 20141205
  Transmission Date: 20150529
  Serious: No
  Sender: FDA-Public Use
  Company Number: US-BRISTOL-MYERS SQUIBB COMPANY-21430707

PATIENT
  Age: 71 Year
  Sex: Male
  Weight: 99.77 kg

DRUGS (2)
  1. METFORMIN HCL [Concomitant]
     Active Substance: METFORMIN HYDROCHLORIDE
  2. BYETTA [Suspect]
     Active Substance: EXENATIDE

REACTIONS (3)
  - Weight decreased [Unknown]
  - Insomnia [Unknown]
  - Food intolerance [Unknown]
